FAERS Safety Report 24112898 (Version 1)
Quarter: 2024Q3

REPORT INFORMATION
  Report Type: Spontaneous
  Country: US (occurrence: US)
  Receive Date: 20240719
  Receipt Date: 20240719
  Transmission Date: 20241017
  Serious: No
  Sender: UPSHER-SMITH
  Company Number: US-UPSHER-SMITH LABORATORIES, LLC-2023USL00870

PATIENT

DRUGS (1)
  1. TESTOSTERONE [Suspect]
     Active Substance: TESTOSTERONE

REACTIONS (1)
  - Therapeutic product effect decreased [Unknown]
